FAERS Safety Report 18469609 (Version 1)
Quarter: 2020Q4

REPORT INFORMATION
  Report Type: Spontaneous
  Country: US (occurrence: US)
  Receive Date: 20201105
  Receipt Date: 20201105
  Transmission Date: 20210114
  Serious: No
  Sender: FDA-Public Use
  Company Number: US-ALMIRALL, LLC-2019AQU000496

PATIENT

DRUGS (1)
  1. VERDESO [Suspect]
     Active Substance: DESONIDE
     Indication: RASH

REACTIONS (1)
  - Application site erythema [Unknown]
